FAERS Safety Report 15049551 (Version 1)
Quarter: 2018Q2

REPORT INFORMATION
  Report Type: Spontaneous
  Country: CA (occurrence: CA)
  Receive Date: 20180622
  Receipt Date: 20180622
  Transmission Date: 20180711
  Serious: Yes (Life-Threatening, Hospitalization)
  Sender: FDA-Public Use
  Company Number: CA-TEVA-2018-CA-910644

PATIENT
  Age: 20 Year
  Sex: Female

DRUGS (1)
  1. PLAN B [Suspect]
     Active Substance: LEVONORGESTREL
     Indication: CONTRACEPTION
     Dosage: FREQUENCY: ONCE
     Route: 048

REACTIONS (3)
  - Human chorionic gonadotropin positive [Unknown]
  - Abdominal pain lower [Unknown]
  - Ectopic pregnancy [Unknown]
